FAERS Safety Report 23976015 (Version 1)
Quarter: 2024Q2

REPORT INFORMATION
  Report Type: Spontaneous
  Country: US (occurrence: US)
  Receive Date: 20240614
  Receipt Date: 20240614
  Transmission Date: 20240716
  Serious: Yes (Other)
  Sender: FDA-Public Use
  Company Number: US-MYLANLABS-2024M1053968

PATIENT
  Age: 7 Decade
  Sex: Female

DRUGS (8)
  1. LEUCOVORIN [Suspect]
     Active Substance: LEUCOVORIN\LEUCOVORIN CALCIUM
     Indication: Pancreatic disorder
     Dosage: UNK, CYCLE (RECEIVED 9 CYCLES)
     Route: 065
  2. LEUCOVORIN [Suspect]
     Active Substance: LEUCOVORIN\LEUCOVORIN CALCIUM
     Indication: Adenosquamous cell carcinoma
  3. OXALIPLATIN [Suspect]
     Active Substance: OXALIPLATIN
     Indication: Pancreatic disorder
     Dosage: UNK, CYCLE (RECEIVED 9 CYCLES)
     Route: 065
  4. OXALIPLATIN [Suspect]
     Active Substance: OXALIPLATIN
     Indication: Adenosquamous cell carcinoma
  5. FLUOROURACIL [Suspect]
     Active Substance: FLUOROURACIL
     Indication: Pancreatic disorder
     Dosage: UNK, CYCLE (RECEIVED 9 CYCLES)
     Route: 065
  6. FLUOROURACIL [Suspect]
     Active Substance: FLUOROURACIL
     Indication: Adenosquamous cell carcinoma
  7. IRINOTECAN [Suspect]
     Active Substance: IRINOTECAN
     Indication: Pancreatic disorder
     Dosage: UNK, CYCLE (RECEIVED 9 CYCLES)
     Route: 065
  8. IRINOTECAN [Suspect]
     Active Substance: IRINOTECAN
     Indication: Adenosquamous cell carcinoma
     Dosage: UNK, CYCLE (DOSE REDUCED BY 50% AT CYCLE?3)
     Route: 065

REACTIONS (3)
  - Steatohepatitis [Unknown]
  - Fatigue [Unknown]
  - Cognitive disorder [Unknown]
